FAERS Safety Report 6018776-9 (Version None)
Quarter: 2008Q4

REPORT INFORMATION
  Report Type: 
  Country: None (occurrence: None)
  Receive Date: 20081222
  Receipt Date: 20081216
  Transmission Date: 20090506
  Serious: Yes (Death)
  Sender: FDA-Public Use
  Company Number: SP02185

PATIENT
  Age: 85 Year
  Sex: Female
  Weight: 45.3597 kg

DRUGS (13)
  1. XIFAXAN [Suspect]
     Indication: GASTROINTESTINAL BACTERIAL INFECTION
     Dosage: FOR 7 DAYS EACH MONTH (200 MG, 3 IN 1 D), ORAL
     Route: 048
  2. XIFAXAN [Suspect]
     Indication: OVERGROWTH BACTERIAL
     Dosage: FOR 7 DAYS EACH MONTH (200 MG, 3 IN 1 D), ORAL
     Route: 048
  3. PANCREATIC ENZYMES [Concomitant]
  4. TINCTURE OF OPIUM [Concomitant]
  5. LEVOTHYROXINE [Concomitant]
  6. DARBEPOETIN ALFA [Concomitant]
  7. METOPROLOL [Concomitant]
  8. LPERAMIDE [Concomitant]
  9. VICODIN [Concomitant]
  10. OS-CAL [Concomitant]
  11. IRON [Concomitant]
  12. MULTI-VITAMIN [Concomitant]
  13. ST. JOHN'S WORT [Concomitant]

REACTIONS (6)
  - ASTHENIA [None]
  - DIARRHOEA [None]
  - FAECAL INCONTINENCE [None]
  - HEAD INJURY [None]
  - HYPOPHAGIA [None]
  - INSOMNIA [None]
